FAERS Safety Report 17796633 (Version 2)
Quarter: 2020Q2

REPORT INFORMATION
  Report Type: Spontaneous
  Country: US (occurrence: US)
  Receive Date: 20200518
  Receipt Date: 20200625
  Transmission Date: 20200714
  Serious: Yes (Hospitalization, Other)
  Sender: FDA-Public Use
  Company Number: US-AUROBINDO-AUR-APL-2020-023903

PATIENT
  Age: 59 Year
  Sex: Male

DRUGS (6)
  1. FLUDARABINE [Suspect]
     Active Substance: FLUDARABINE PHOSPHATE
     Indication: HIGH-GRADE B-CELL LYMPHOMA
     Dosage: UNK
     Route: 065
  2. PREDNISONE. [Suspect]
     Active Substance: PREDNISONE
     Indication: HIGH-GRADE B-CELL LYMPHOMA
     Dosage: UNK
     Route: 065
  3. DEXAMETHASONE. [Suspect]
     Active Substance: DEXAMETHASONE
     Indication: HIGH-GRADE B-CELL LYMPHOMA
     Dosage: UNK (PULSE HIGH-DOSE)
     Route: 065
  4. CYCLOPHOSPHAMIDE. [Suspect]
     Active Substance: CYCLOPHOSPHAMIDE
     Indication: HIGH-GRADE B-CELL LYMPHOMA
     Dosage: UNK
     Route: 065
  5. GEMCITABINE. [Concomitant]
     Active Substance: GEMCITABINE
     Indication: HIGH-GRADE B-CELL LYMPHOMA
     Dosage: UNK TWO CYCLES
     Route: 065
  6. OXALIPLATIN. [Concomitant]
     Active Substance: OXALIPLATIN
     Indication: HIGH-GRADE B-CELL LYMPHOMA
     Dosage: UNK TWO CYCLES
     Route: 065

REACTIONS (9)
  - Cataract [Not Recovered/Not Resolved]
  - Pancytopenia [Not Recovered/Not Resolved]
  - Bone marrow failure [Not Recovered/Not Resolved]
  - Urinary incontinence [Unknown]
  - Toxicity to various agents [Unknown]
  - Hemiparesis [Not Recovered/Not Resolved]
  - Impaired quality of life [Unknown]
  - Vision blurred [Unknown]
  - Balance disorder [Unknown]
